FAERS Safety Report 7361601-4 (Version None)
Quarter: 2011Q1

REPORT INFORMATION
  Report Type: 
  Country: None (occurrence: None)
  Receive Date: 20110309
  Receipt Date: 20110226
  Transmission Date: 20110831
  Serious: Yes (Other)
  Sender: FDA-Public Use
  Company Number: 2011AP000370

PATIENT
  Age: 55 Year
  Sex: Male

DRUGS (2)
  1. TACROLIMUS [Suspect]
     Indication: IMMUNOSUPPRESSION
     Dates: start: 20020101
  2. MYCOPHENOLATE MOFETIL [Suspect]
     Indication: IMMUNOSUPPRESSION
     Dates: start: 20020101

REACTIONS (2)
  - EPSTEIN-BARR VIRUS ASSOCIATED LYMPHOPROLIFERATIVE DISORDER [None]
  - COLITIS [None]
